FAERS Safety Report 9280121 (Version 4)
Quarter: 2013Q4

REPORT INFORMATION
  Report Type: Spontaneous
  Country: IT (occurrence: IT)
  Receive Date: 20130509
  Receipt Date: 20131212
  Transmission Date: 20140711
  Serious: Yes (Life-Threatening, Hospitalization)
  Sender: FDA-Public Use
  Company Number: IT-AMGEN-ITASP2013031628

PATIENT
  Age: 48 Year
  Sex: Male

DRUGS (4)
  1. NEULASTA [Suspect]
     Indication: FEBRILE NEUTROPENIA
     Dosage: 6 MG, CYCLICAL
     Route: 058
     Dates: start: 20130216, end: 20130306
  2. PLATIN                             /00412101/ [Concomitant]
     Indication: SEMINOMA
     Dosage: 200 MG, UNK
  3. ETOPOSIDE [Concomitant]
     Indication: SEMINOMA
     Dosage: 1000 MG, UNK
  4. BLEOMYCIN SULPHATE [Concomitant]
     Indication: SEMINOMA
     Dosage: UNK

REACTIONS (1)
  - Splenic rupture [Recovered/Resolved with Sequelae]
